FAERS Safety Report 18516990 (Version 1)
Quarter: 2020Q4

REPORT INFORMATION
  Report Type: Spontaneous
  Country: ES (occurrence: ES)
  Receive Date: 20201118
  Receipt Date: 20201118
  Transmission Date: 20210114
  Serious: Yes (Other)
  Sender: FDA-Public Use
  Company Number: ES-TEVA-2020-ES-1850185

PATIENT
  Age: 56 Year
  Sex: Male

DRUGS (2)
  1. AMOXICILINA + ACIDO CLAVULANICO [Suspect]
     Active Substance: AMOXICILLIN\CLAVULANIC ACID
     Route: 048
     Dates: start: 20201028, end: 20201028
  2. DEXKETOPROFENO (7312A) [Suspect]
     Active Substance: DEXKETOPROFEN
     Route: 048
     Dates: start: 20201028

REACTIONS (2)
  - Pruritus [Recovered/Resolved]
  - Syncope [Recovered/Resolved]

NARRATIVE: CASE EVENT DATE: 20201028
